FAERS Safety Report 7089355-X (Version None)
Quarter: 2010Q4

REPORT INFORMATION
  Report Type: 
  Country: None (occurrence: None)
  Receive Date: 20101108
  Receipt Date: 20101027
  Transmission Date: 20110411
  Serious: Yes (Hospitalization, Other)
  Sender: FDA-Public Use
  Company Number: US-ACTELION-A-NJ2010-40522

PATIENT
  Sex: Male

DRUGS (2)
  1. BOSENTAN TABLET UNKNOWN US MG [Suspect]
     Indication: PULMONARY ARTERIAL HYPERTENSION
     Dosage: 10 MG, BID
     Route: 048
     Dates: start: 20100724
  2. VIAGRA [Concomitant]

REACTIONS (3)
  - LUNG DISORDER [None]
  - PULMONARY ARTERIAL HYPERTENSION [None]
  - URETHRAL REPAIR [None]
